FAERS Safety Report 18873177 (Version 3)
Quarter: 2021Q1

REPORT INFORMATION
  Report Type: Spontaneous
  Country: US (occurrence: US)
  Receive Date: 20210210
  Receipt Date: 20210312
  Transmission Date: 20210420
  Serious: Yes (Other)
  Sender: FDA-Public Use
  Company Number: US-PFIZER INC-2021115995

PATIENT
  Age: 68 Year
  Sex: Female

DRUGS (1)
  1. IBRANCE [Suspect]
     Active Substance: PALBOCICLIB
     Indication: BREAST CANCER FEMALE
     Dosage: 125 MG, CYCLIC, FOR 21 DAYS ON 7 DAYS OFF ON A 28 DAY CYCLE.
     Dates: start: 20210119

REACTIONS (4)
  - Ageusia [Unknown]
  - Nausea [Unknown]
  - Tremor [Unknown]
  - Diabetes mellitus [Unknown]
